FAERS Safety Report 21880052 (Version 4)
Quarter: 2023Q1

REPORT INFORMATION
  Report Type: Report from Study
  Country: US (occurrence: US)
  Receive Date: 20230118
  Receipt Date: 20230322
  Transmission Date: 20230418
  Serious: No
  Sender: FDA-Public Use
  Company Number: US-002147023-NVSC2023US009492

PATIENT
  Sex: Female

DRUGS (1)
  1. COSENTYX [Suspect]
     Active Substance: SECUKINUMAB
     Indication: Psoriasis
     Dosage: 150 MG, QW FOR 0, 1, 2, 3, 4 AND EVERY 4 WEEKS THEREAFTER
     Route: 058

REACTIONS (6)
  - Psoriasis [Unknown]
  - Pruritus [Unknown]
  - Skin lesion [Unknown]
  - Infection [Unknown]
  - White blood cell count increased [Unknown]
  - Influenza [Unknown]
